FAERS Safety Report 9659131 (Version 2)
Quarter: 2014Q1

REPORT INFORMATION
  Report Type: Spontaneous
  Country: US (occurrence: US)
  Receive Date: 20131031
  Receipt Date: 20140202
  Transmission Date: 20141002
  Serious: No
  Sender: FDA-Public Use
  Company Number: US-009507513-1310USA014719

PATIENT
  Sex: Female
  Weight: 96.6 kg

DRUGS (2)
  1. IMPLANON [Suspect]
     Indication: CONTRACEPTION
     Dosage: 1 DF/3 YEARS
     Route: 059
     Dates: start: 20100614, end: 20101209
  2. IMPLANON [Suspect]
     Dosage: 1 DF/3 YEARS
     Route: 059
     Dates: start: 20101209, end: 20120607

REACTIONS (3)
  - Device breakage [Recovered/Resolved]
  - Device breakage [Recovered/Resolved]
  - No adverse event [Unknown]
